FAERS Safety Report 4469635-4 (Version None)
Quarter: 2004Q4

REPORT INFORMATION
  Report Type: 
  Country: None (occurrence: None)
  Receive Date: 20041005
  Receipt Date: 20040920
  Transmission Date: 20050328
  Serious: Yes (Other)
  Sender: FDA-Public Use
  Company Number: 200408525

PATIENT
  Age: 62 Year
  Sex: Female
  Weight: 47.6277 kg

DRUGS (1)
  1. BOTOX COSMETIC [Suspect]
     Indication: SKIN WRINKLING
     Dates: start: 20030101, end: 20040301

REACTIONS (4)
  - DYSPHAGIA [None]
  - EYE IRRITATION [None]
  - SPEECH DISORDER [None]
  - VISUAL DISTURBANCE [None]
